FAERS Safety Report 4487632-X (Version None)
Quarter: 2004Q4

REPORT INFORMATION
  Report Type: 
  Country: None (occurrence: None)
  Receive Date: 20041025
  Receipt Date: 20041012
  Transmission Date: 20050328
  Serious: Yes (Other)
  Sender: FDA-Public Use
  Company Number: 2004079228

PATIENT

DRUGS (3)
  1. NEURONTIN [Suspect]
     Indication: ILL-DEFINED DISORDER
     Dosage: 900 MG (300 MG , 3 IN 1 D)
  2. VALDECOXIB [Suspect]
     Indication: ILL-DEFINED DISORDER
  3. ROFECOXIB [Suspect]
     Indication: ILL-DEFINED DISORDER

REACTIONS (6)
  - DRUG INEFFECTIVE [None]
  - KNEE OPERATION [None]
  - PAIN [None]
  - PAIN IN EXTREMITY [None]
  - SHOULDER OPERATION [None]
  - SPINAL FUSION SURGERY [None]
